APPROVED DRUG PRODUCT: HALOETTE
Active Ingredient: ETHINYL ESTRADIOL; ETONOGESTREL
Strength: 0.015MG/24HR;0.12MG/24HR
Dosage Form/Route: RING;VAGINAL
Application: A211328 | Product #001 | TE Code: AB
Applicant: DR REDDYS LABORATORIES SA
Approved: Aug 5, 2022 | RLD: No | RS: No | Type: RX